FAERS Safety Report 18643284 (Version 10)
Quarter: 2023Q1

REPORT INFORMATION
  Report Type: Spontaneous
  Country: US (occurrence: US)
  Receive Date: 20201221
  Receipt Date: 20230317
  Transmission Date: 20230418
  Serious: Yes (Hospitalization, Other)
  Sender: FDA-Public Use
  Company Number: US-PFIZER INC-2020500402

PATIENT
  Age: 80 Year
  Sex: Male
  Weight: 127.91 kg

DRUGS (11)
  1. BOSULIF [Suspect]
     Active Substance: BOSUTINIB MONOHYDRATE
     Indication: Chronic myeloid leukaemia
     Dosage: 100 MG, DAILY
  2. BOSULIF [Suspect]
     Active Substance: BOSUTINIB MONOHYDRATE
     Dosage: 100 MG
     Dates: start: 20201210
  3. BOSULIF [Suspect]
     Active Substance: BOSUTINIB MONOHYDRATE
     Dosage: 200 MG
     Dates: start: 20220222
  4. BOSULIF [Suspect]
     Active Substance: BOSUTINIB MONOHYDRATE
     Dosage: 100 MG, 1X/DAY
     Route: 048
  5. PLAVIX [Concomitant]
     Active Substance: CLOPIDOGREL BISULFATE
     Dosage: 75 MG, 1X/DAY
     Dates: start: 202207
  6. ASPIRIN [Concomitant]
     Active Substance: ASPIRIN
     Dosage: 81 MG, 1X/DAY
     Dates: start: 202207
  7. NITROGLYCERIN [Concomitant]
     Active Substance: NITROGLYCERIN
     Dosage: UNK, 2X/DAY (30 DURING THE DAY AND 60 AT NIGHT) (LONG TERM NITROGLYCERIN)
  8. TORSEMIDE [Concomitant]
     Active Substance: TORSEMIDE
     Indication: Fluid retention
     Dosage: UNK
  9. MORNIFLUMATE [Concomitant]
     Active Substance: MORNIFLUMATE
     Dosage: 0.4MG ONE CAPSULE BY MOUTH
     Route: 048
  10. HYDRALAZINE [Concomitant]
     Active Substance: HYDRALAZINE HYDROCHLORIDE
     Indication: Blood pressure measurement
     Dosage: 25 MG, 3X/DAY
  11. METOPROLOL [Concomitant]
     Active Substance: METOPROLOL
     Indication: Cardiac disorder
     Dosage: 50 MG (ONLY FOR A HEART RATE GREATER THAN 60)

REACTIONS (8)
  - Myocardial infarction [Recovering/Resolving]
  - Stent placement [Unknown]
  - Dysphonia [Unknown]
  - Hypoacusis [Unknown]
  - Haematoma [Unknown]
  - Weight decreased [Unknown]
  - White blood cell count increased [Unknown]
  - Product distribution issue [Unknown]

NARRATIVE: CASE EVENT DATE: 20201201
